FAERS Safety Report 20004653 (Version 1)
Quarter: 2021Q4

REPORT INFORMATION
  Report Type: Spontaneous
  Country: US (occurrence: US)
  Receive Date: 20211027
  Receipt Date: 20211027
  Transmission Date: 20220303
  Serious: No
  Sender: FDA-Public Use
  Company Number: US-PERRIGO-21US001021

PATIENT
  Age: 81 Year
  Sex: Female
  Weight: 56.69 kg

DRUGS (3)
  1. CICLOPIROX [Suspect]
     Active Substance: CICLOPIROX
     Indication: Onychomycosis
     Dosage: 1 APPLICATION, BID
     Route: 061
     Dates: start: 202011, end: 202101
  2. CICLOPIROX [Suspect]
     Active Substance: CICLOPIROX
     Dosage: 1 APPLICATION, QD
     Route: 061
     Dates: start: 202101
  3. SIMVASTATIN [Concomitant]
     Active Substance: SIMVASTATIN
     Indication: Blood cholesterol increased
     Dosage: UNK
     Route: 065
     Dates: start: 2011

REACTIONS (2)
  - Nail growth abnormal [Not Recovered/Not Resolved]
  - Inappropriate schedule of product administration [Recovered/Resolved]

NARRATIVE: CASE EVENT DATE: 20201101
